FAERS Safety Report 23011188 (Version 5)
Quarter: 2024Q1

REPORT INFORMATION
  Report Type: Report from Study
  Country: CA (occurrence: CA)
  Receive Date: 20230929
  Receipt Date: 20240206
  Transmission Date: 20240410
  Serious: Yes (Death, Other)
  Sender: FDA-Public Use
  Company Number: CA-HLS-202302237

PATIENT
  Age: 58 Year
  Sex: Male
  Weight: 53 kg

DRUGS (2)
  1. CLOZARIL [Suspect]
     Active Substance: CLOZAPINE
     Indication: Bipolar disorder
     Route: 048
     Dates: start: 20030516
  2. CLOZARIL [Suspect]
     Active Substance: CLOZAPINE
     Indication: Schizophrenia
     Route: 048
     Dates: start: 20030516

REACTIONS (6)
  - Dyspnoea [Recovering/Resolving]
  - Hypercalcaemia [Unknown]
  - Off label use [Unknown]
  - Blood parathyroid hormone abnormal [Unknown]
  - Lung cancer metastatic [Unknown]
  - Neoplasm malignant [Fatal]
